FAERS Safety Report 24132060 (Version 1)
Quarter: 2024Q3

REPORT INFORMATION
  Report Type: Spontaneous
  Country: US (occurrence: US)
  Receive Date: 20240724
  Receipt Date: 20240724
  Transmission Date: 20241016
  Serious: Yes (Other)
  Sender: NOVARTIS
  Company Number: US-002147023-NVSC2024US149988

PATIENT
  Age: 31 Year
  Sex: Female

DRUGS (2)
  1. KESIMPTA [Suspect]
     Active Substance: OFATUMUMAB
     Indication: Product used for unknown indication
     Dosage: UNK
     Route: 065
  2. SOLU-MEDROL [Suspect]
     Active Substance: METHYLPREDNISOLONE SODIUM SUCCINATE
     Indication: Product used for unknown indication
     Dosage: 1000 MG
     Route: 065

REACTIONS (9)
  - Pneumonia [Unknown]
  - Paralysis [Unknown]
  - Multiple sclerosis relapse [Unknown]
  - Myelitis transverse [Unknown]
  - Pain [Unknown]
  - Symptom recurrence [Unknown]
  - Mobility decreased [Unknown]
  - Fear [Unknown]
  - Crying [Unknown]
